FAERS Safety Report 17907159 (Version 1)
Quarter: 2020Q2

REPORT INFORMATION
  Report Type: Spontaneous
  Country: US (occurrence: US)
  Receive Date: 20200617
  Receipt Date: 20200617
  Transmission Date: 20200714
  Serious: Yes (Hospitalization, Disabling)
  Sender: FDA-Public Use
  Company Number: None

PATIENT
  Age: 74 Year
  Sex: Female
  Weight: 103 kg

DRUGS (1)
  1. ROSUVASTATIN. [Suspect]
     Active Substance: ROSUVASTATIN
     Route: 048

REACTIONS (5)
  - Muscular weakness [None]
  - Necrotising myositis [None]
  - Gait inability [None]
  - Blood creatine phosphokinase increased [None]
  - Drug hypersensitivity [None]

NARRATIVE: CASE EVENT DATE: 20200526
